APPROVED DRUG PRODUCT: MIDAZOLAM HYDROCHLORIDE
Active Ingredient: MIDAZOLAM HYDROCHLORIDE
Strength: EQ 1MG BASE/ML
Dosage Form/Route: INJECTABLE;INJECTION
Application: A217504 | Product #001 | TE Code: AP
Applicant: MICRO LABS LTD
Approved: Aug 21, 2023 | RLD: No | RS: No | Type: RX